FAERS Safety Report 21738497 (Version 1)
Quarter: 2022Q4

REPORT INFORMATION
  Report Type: Spontaneous
  Country: PR (occurrence: PR)
  Receive Date: 20221216
  Receipt Date: 20221216
  Transmission Date: 20230112
  Serious: Yes (Other)
  Sender: FDA-Public Use
  Company Number: PR-Vifor (International) Inc.-VIT-2022-08624

PATIENT
  Age: 73 Year
  Sex: Male
  Weight: 82.1 kg

DRUGS (1)
  1. MIRCERA [Suspect]
     Active Substance: METHOXY POLYETHYLENE GLYCOL-EPOETIN BETA
     Indication: Nephrogenic anaemia
     Route: 042
     Dates: start: 20220913, end: 20221107

REACTIONS (3)
  - Drug hypersensitivity [Recovering/Resolving]
  - Chest discomfort [Recovering/Resolving]
  - Tension headache [Recovering/Resolving]

NARRATIVE: CASE EVENT DATE: 20221107
